FAERS Safety Report 4865736-7 (Version None)
Quarter: 2005Q4

REPORT INFORMATION
  Report Type: 
  Country: None (occurrence: None)
  Receive Date: 20051220
  Receipt Date: 20051122
  Transmission Date: 20060501
  Serious: Yes (Hospitalization)
  Sender: FDA-Public Use
  Company Number: 20718

PATIENT
  Age: 90 Year
  Sex: Female

DRUGS (5)
  1. OMEPRAZOLE [Suspect]
     Dosage: 20 MG
     Route: 048
  2. HYZAAR [Suspect]
     Dosage: 1 DOSAGE FORM
     Route: 048
     Dates: end: 20020804
  3. GAVISCON [Suspect]
     Route: 048
     Dates: end: 20020804
  4. TEMESTA (LORAZEPAM) [Concomitant]
  5. FLECAINIDE ACETATE [Suspect]
     Route: 048
     Dates: end: 20020804

REACTIONS (5)
  - ARRHYTHMIA [None]
  - ATRIAL FIBRILLATION [None]
  - HEMIPARESIS [None]
  - THROMBOCYTOPENIA [None]
  - TRANSIENT ISCHAEMIC ATTACK [None]
